FAERS Safety Report 13915711 (Version 1)
Quarter: 2017Q3

REPORT INFORMATION
  Report Type: Spontaneous
  Country: US (occurrence: US)
  Receive Date: 20170829
  Receipt Date: 20170829
  Transmission Date: 20171127
  Serious: No
  Sender: FDA-Public Use
  Company Number: US-MYLANLABS-2016M1053069

PATIENT
  Age: 81 Year
  Sex: Female

DRUGS (1)
  1. CLONIDINE TRANSDERMAL SYSTEM [Suspect]
     Active Substance: CLONIDINE
     Indication: HYPERTENSION
     Dosage: 0.1 MG, ONCE
     Route: 062
     Dates: start: 20161127, end: 20161128

REACTIONS (11)
  - Asthma [Recovering/Resolving]
  - Chest pain [Recovering/Resolving]
  - Nausea [Recovering/Resolving]
  - Hypersensitivity [Recovering/Resolving]
  - Feeling cold [Recovered/Resolved]
  - Rhinorrhoea [Recovering/Resolving]
  - Dyspnoea [Recovering/Resolving]
  - Headache [Recovering/Resolving]
  - Blood pressure increased [Recovering/Resolving]
  - Dizziness [Recovering/Resolving]
  - Neck pain [Recovering/Resolving]

NARRATIVE: CASE EVENT DATE: 20161128
